FAERS Safety Report 8402106-9 (Version None)
Quarter: 2012Q2

REPORT INFORMATION
  Report Type: 
  Country: None (occurrence: None)
  Receive Date: 20120601
  Receipt Date: 20120530
  Transmission Date: 20120825
  Serious: Yes (Death)
  Sender: FDA-Public Use
  Company Number: PHHY2012BR046591

PATIENT
  Sex: Male

DRUGS (3)
  1. TRILEPTAL [Suspect]
     Indication: EPILEPSY
     Dosage: 2 TABLETS PER DAY (MORNING AND NIGHT)
  2. ENTACAPONE [Concomitant]
     Indication: PARKINSON'S DISEASE
  3. PROLOPA [Concomitant]
     Indication: PARKINSON'S DISEASE

REACTIONS (1)
  - MULTI-ORGAN FAILURE [None]
